FAERS Safety Report 8285791 (Version 41)
Quarter: 2025Q1

REPORT INFORMATION
  Report Type: Report from Study
  Country: CA (occurrence: CA)
  Receive Date: 20111213
  Receipt Date: 20250212
  Transmission Date: 20250409
  Serious: Yes (Hospitalization, Other)
  Sender: NOVARTIS
  Company Number: PHHY2011CA101638

PATIENT
  Age: 12 Year
  Sex: Male

DRUGS (40)
  1. SANDOSTATIN LAR DEPOT [Suspect]
     Active Substance: OCTREOTIDE ACETATE
     Indication: Growth hormone-producing pituitary tumour
     Dosage: 20 MG, QMO
     Route: 030
     Dates: start: 20110923
  2. SANDOSTATIN LAR DEPOT [Suspect]
     Active Substance: OCTREOTIDE ACETATE
     Dosage: 30 MG, QMO (EVERY 4 WEEKS)
     Route: 030
     Dates: start: 20110923
  3. SANDOSTATIN LAR DEPOT [Suspect]
     Active Substance: OCTREOTIDE ACETATE
     Route: 065
     Dates: start: 20110923
  4. SANDOSTATIN LAR DEPOT [Suspect]
     Active Substance: OCTREOTIDE ACETATE
     Dosage: 30 MG, QMO (EVERY 4 WEEKS)
     Route: 030
     Dates: start: 201702
  5. SANDOSTATIN LAR DEPOT [Suspect]
     Active Substance: OCTREOTIDE ACETATE
     Route: 030
     Dates: start: 201810, end: 201902
  6. SANDOSTATIN LAR DEPOT [Suspect]
     Active Substance: OCTREOTIDE ACETATE
     Dosage: 30 MG, QMO
     Route: 030
  7. SANDOSTATIN LAR DEPOT [Suspect]
     Active Substance: OCTREOTIDE ACETATE
     Dosage: 30 MG, QMO
     Route: 030
  8. RISPERIDONE [Suspect]
     Active Substance: RISPERIDONE
     Indication: Product used for unknown indication
     Route: 065
  9. SERTRALINE [Suspect]
     Active Substance: SERTRALINE HYDROCHLORIDE
     Indication: Product used for unknown indication
     Route: 065
  10. PROPRANOLOL HYDROCHLORIDE [Suspect]
     Active Substance: PROPRANOLOL HYDROCHLORIDE
     Indication: Tremor
     Dosage: UNK, BID
     Route: 048
  11. PROPRANOLOL HYDROCHLORIDE [Suspect]
     Active Substance: PROPRANOLOL HYDROCHLORIDE
     Dosage: 15 MG, BID
     Route: 048
  12. PROPRANOLOL HYDROCHLORIDE [Suspect]
     Active Substance: PROPRANOLOL HYDROCHLORIDE
     Dosage: UNK, QD
     Route: 048
  13. PROPRANOLOL HYDROCHLORIDE [Suspect]
     Active Substance: PROPRANOLOL HYDROCHLORIDE
     Dosage: 30 MG, QD
     Route: 048
  14. PROPRANOLOL HYDROCHLORIDE [Suspect]
     Active Substance: PROPRANOLOL HYDROCHLORIDE
     Dosage: UNK, QD (1 EVERY 1 DAYS)
     Route: 048
  15. PROPRANOLOL HYDROCHLORIDE [Suspect]
     Active Substance: PROPRANOLOL HYDROCHLORIDE
     Dosage: 30 MG, QD, (1 EVERY 1 DAYS)
     Route: 048
  16. PROPRANOLOL HYDROCHLORIDE [Suspect]
     Active Substance: PROPRANOLOL HYDROCHLORIDE
     Indication: Tremor
     Dosage: UNK, QD
     Route: 048
  17. PROPRANOLOL HYDROCHLORIDE [Suspect]
     Active Substance: PROPRANOLOL HYDROCHLORIDE
     Dosage: 15 MG, BID (30 MG, QD)
     Route: 048
  18. SOMAVERT [Suspect]
     Active Substance: PEGVISOMANT
     Indication: Pituitary tumour
     Dosage: 15 MG, QD
     Route: 065
  19. SOMAVERT [Suspect]
     Active Substance: PEGVISOMANT
     Indication: Blood growth hormone
     Route: 065
     Dates: start: 201301
  20. SOMAVERT [Suspect]
     Active Substance: PEGVISOMANT
     Dosage: 15 MG, QD
     Route: 065
  21. SOMAVERT [Suspect]
     Active Substance: PEGVISOMANT
     Dosage: 30 MG, QW
     Route: 065
  22. STRATTERA [Concomitant]
     Active Substance: ATOMOXETINE HYDROCHLORIDE
     Indication: Product used for unknown indication
     Route: 065
  23. STRATTERA [Concomitant]
     Active Substance: ATOMOXETINE HYDROCHLORIDE
     Route: 065
  24. PEGVISOMANT [Concomitant]
     Active Substance: PEGVISOMANT
     Indication: Product used for unknown indication
     Route: 065
  25. ATOMOXETINE [Concomitant]
     Active Substance: ATOMOXETINE
     Indication: Product used for unknown indication
     Route: 065
  26. ATOMOXETINE [Concomitant]
     Active Substance: ATOMOXETINE
     Route: 065
  27. PRIMIDONE [Concomitant]
     Active Substance: PRIMIDONE
     Indication: Product used for unknown indication
     Dosage: 50 MG, BID
     Route: 065
     Dates: start: 201805
  28. SYNTHROID [Concomitant]
     Active Substance: LEVOTHYROXINE SODIUM
     Indication: Product used for unknown indication
     Route: 065
  29. SYNTHROID [Concomitant]
     Active Substance: LEVOTHYROXINE SODIUM
     Route: 065
  30. ANDRODERM [Concomitant]
     Active Substance: TESTOSTERONE
     Indication: Product used for unknown indication
     Route: 065
  31. ANDRODERM [Concomitant]
     Active Substance: TESTOSTERONE
     Route: 065
  32. MORPHINE [Concomitant]
     Active Substance: MORPHINE
     Indication: Product used for unknown indication
     Route: 065
  33. MORPHINE [Concomitant]
     Active Substance: MORPHINE
     Route: 065
  34. CORTEF [Concomitant]
     Active Substance: HYDROCORTISONE
     Indication: Product used for unknown indication
     Route: 065
  35. MELATONIN [Concomitant]
     Active Substance: MELATONIN
     Indication: Product used for unknown indication
     Route: 065
  36. MELATONIN [Concomitant]
     Active Substance: MELATONIN
     Route: 065
  37. CARBAMAZEPINE [Concomitant]
     Active Substance: CARBAMAZEPINE
     Indication: Product used for unknown indication
     Route: 065
  38. CARBAMAZEPINE [Concomitant]
     Active Substance: CARBAMAZEPINE
     Route: 065
  39. Algedol [Concomitant]
     Indication: Product used for unknown indication
     Route: 065
  40. TESTOSTERONE [Concomitant]
     Active Substance: TESTOSTERONE
     Indication: Product used for unknown indication
     Route: 065

REACTIONS (42)
  - Vomiting [Unknown]
  - Fall [Unknown]
  - Shunt occlusion [Unknown]
  - Nausea [Unknown]
  - Device malfunction [Recovered/Resolved]
  - Abdominal pain [Unknown]
  - Shunt malfunction [Unknown]
  - Brain injury [Unknown]
  - Seizure [Unknown]
  - Neoplasm progression [Unknown]
  - Hepatotoxicity [Unknown]
  - Helicobacter infection [Recovered/Resolved]
  - Strabismus [Unknown]
  - Growth hormone-producing pituitary tumour [Unknown]
  - Obsessive-compulsive disorder [Unknown]
  - Stress [Unknown]
  - Cough [Unknown]
  - Agitation [Unknown]
  - Chest pain [Unknown]
  - Swelling [Unknown]
  - Contusion [Unknown]
  - Gait disturbance [Unknown]
  - Pyrexia [Unknown]
  - Influenza [Unknown]
  - Foot deformity [Unknown]
  - Eye movement disorder [Unknown]
  - Gastric hypomotility [Unknown]
  - Eructation [Unknown]
  - Tremor [Unknown]
  - Breath odour [Recovered/Resolved]
  - Viral diarrhoea [Recovered/Resolved]
  - Hepatic enzyme increased [Unknown]
  - Blood growth hormone increased [Unknown]
  - Insulin-like growth factor increased [Unknown]
  - Injection site pain [Unknown]
  - Constipation [Unknown]
  - Infrequent bowel movements [Recovering/Resolving]
  - Diarrhoea [Unknown]
  - Injection site haemorrhage [Unknown]
  - Needle issue [Unknown]
  - Product use issue [Unknown]
  - Treatment failure [Unknown]

NARRATIVE: CASE EVENT DATE: 20111028
